FAERS Safety Report 8792551 (Version 2)
Quarter: 2014Q3

REPORT INFORMATION
  Report Type: Report from Study
  Country: US (occurrence: US)
  Receive Date: 20120918
  Receipt Date: 20140904
  Transmission Date: 20150326
  Serious: Yes (Death, Other)
  Sender: FDA-Public Use
  Company Number: US-ROCHE-1128120

PATIENT
  Sex: Female
  Weight: 72 kg

DRUGS (2)
  1. ABRAXANE [Concomitant]
     Active Substance: PACLITAXEL
  2. AVASTIN [Suspect]
     Active Substance: BEVACIZUMAB
     Indication: FALLOPIAN TUBE CANCER
     Dosage: DOSAGE INFUSED: 106MG
     Route: 042
     Dates: start: 20060908

REACTIONS (2)
  - Death [Fatal]
  - Metastases to pelvis [Unknown]
